FAERS Safety Report 8252681-2 (Version None)
Quarter: 2012Q2

REPORT INFORMATION
  Report Type: 
  Country: None (occurrence: None)
  Receive Date: 20120402
  Receipt Date: 20110810
  Transmission Date: 20120825
  Serious: No
  Sender: FDA-Public Use
  Company Number: US-ABBOTT-11P-163-0845545-00

PATIENT
  Age: 62 Year
  Sex: Male
  Weight: 86.714 kg

DRUGS (2)
  1. ANDROGEL [Suspect]
     Indication: BLOOD TESTOSTERONE DECREASED
     Dosage: 3 PUMP PRESSES DAILY
     Dates: start: 20110621, end: 20110719
  2. ANDROGEL [Suspect]
     Dosage: FOUR PUMP PRESSES DAILY
     Dates: start: 20110721

REACTIONS (2)
  - DRUG INEFFECTIVE [None]
  - BLOOD TESTOSTERONE DECREASED [None]
